FAERS Safety Report 6725313-X (Version None)
Quarter: 2010Q2

REPORT INFORMATION
  Report Type: 
  Country: None (occurrence: None)
  Receive Date: 20100514
  Receipt Date: 20100511
  Transmission Date: 20101027
  Serious: Yes (Hospitalization)
  Sender: FDA-Public Use
  Company Number: GB-BRISTOL-MYERS SQUIBB COMPANY-14970602

PATIENT
  Age: 59 Year
  Sex: Male
  Weight: 65 kg

DRUGS (14)
  1. CISPLATIN [Suspect]
     Indication: NON-SMALL CELL LUNG CANCER
     Route: 042
     Dates: start: 20091117, end: 20091208
  2. ALIMTA [Suspect]
     Indication: NON-SMALL CELL LUNG CANCER
     Route: 042
     Dates: start: 20091117, end: 20091208
  3. OMEPRAZOLE [Concomitant]
  4. DICLOFENAC [Concomitant]
     Indication: ANALGESIC THERAPY
  5. ACETAMINOPHEN AND CODEINE PHOSPHATE [Concomitant]
     Indication: ANALGESIC THERAPY
  6. GLYCERIN SUPPOSITORIES [Concomitant]
     Indication: CONSTIPATION
     Dosage: FORMULATION:USP 27.
     Dates: start: 20091003
  7. NULYTELY [Concomitant]
     Indication: CONSTIPATION
     Dates: start: 20091003
  8. FOLIC ACID [Concomitant]
     Dates: start: 20091007
  9. VITAMIN B-12 [Concomitant]
     Dates: start: 20091007
  10. MST [Concomitant]
     Indication: ANALGESIC THERAPY
     Dates: start: 20091003
  11. CLEXANE [Concomitant]
     Indication: COAGULOPATHY
     Dates: start: 20091016
  12. MAGNESIUM SULFATE [Concomitant]
  13. ONDANSETRON [Concomitant]
  14. DEXAMETHASONE [Concomitant]

REACTIONS (1)
  - ABDOMINAL PAIN [None]
